FAERS Safety Report 18159140 (Version 1)
Quarter: 2020Q3

REPORT INFORMATION
  Report Type: Spontaneous
  Country: SA (occurrence: SA)
  Receive Date: 20200817
  Receipt Date: 20200817
  Transmission Date: 20201103
  Serious: Yes (Other)
  Sender: FDA-Public Use
  Company Number: SA-FRESENIUS KABI-FK202008382

PATIENT
  Age: 36 Year
  Sex: Female

DRUGS (3)
  1. BUPIVACAINE (MANUFACTURER UNKNOWN) [Suspect]
     Active Substance: BUPIVACAINE
     Indication: LOCAL ANAESTHESIA
     Route: 050
  2. HYALURONIDASE [Suspect]
     Active Substance: HYALURONIDASE
     Indication: LOCAL ANAESTHESIA
     Route: 050
  3. LIDOCAINE / EPINEPHRINE 2% (MANUFACTURER UNKNOWN) [Suspect]
     Active Substance: EPINEPHRINE\LIDOCAINE
     Indication: LOCAL ANAESTHESIA
     Dosage: 1: 100 000 EPINEPHRINE
     Route: 050

REACTIONS (1)
  - Strabismus [Recovered/Resolved]
